FAERS Safety Report 5103016-5 (Version None)
Quarter: 2006Q3

REPORT INFORMATION
  Report Type: 
  Country: None (occurrence: None)
  Receive Date: 20060908
  Receipt Date: 20060830
  Transmission Date: 20061208
  Serious: No
  Sender: FDA-Public Use
  Company Number: 06H-087-0309798-00

PATIENT
  Age: 55 Year
  Sex: Male

DRUGS (8)
  1. PRECEDEX INJECTIN (DEXMEDETOMIDINE HYDROCHLORIDE INJECTION) (DEXMEDETO [Suspect]
     Indication: SEDATIVE THERAPY
     Dates: start: 20050111, end: 20050112
  2. FENTANYL CITRATE [Concomitant]
  3. PROPOFOL [Concomitant]
  4. DOPAMINE HCL [Concomitant]
  5. DOBUTAMINE HYDROCHLORIDE (DOBUPUM) (DOBUTAMINE HYDROCHLORIDE) [Concomitant]
  6. MIDAZOLAM HYDROCHLORIDE [Concomitant]
  7. NITROGLYCERIN [Concomitant]
  8. NICARDIPINE HYDROCHLORIDE [Concomitant]

REACTIONS (1)
  - SUPRAVENTRICULAR EXTRASYSTOLES [None]
